FAERS Safety Report 6610117-9 (Version None)
Quarter: 2010Q1

REPORT INFORMATION
  Report Type: 
  Country: None (occurrence: None)
  Receive Date: 20100219
  Receipt Date: 20100205
  Transmission Date: 20100710
  Serious: Yes (Other)
  Sender: FDA-Public Use
  Company Number: 1000011490

PATIENT
  Age: 61 Year
  Sex: Female

DRUGS (1)
  1. CITALOPRAM HYDROBROMIDE [Suspect]
     Indication: DEPRESSION POSTOPERATIVE
     Dosage: 10 MG (10 MG,  1 IN 1 D), ORAL
     Route: 048
     Dates: start: 20090801

REACTIONS (3)
  - AGITATION [None]
  - ANXIETY [None]
  - DRUG EFFECT DELAYED [None]
